FAERS Safety Report 18183642 (Version 5)
Quarter: 2022Q1

REPORT INFORMATION
  Report Type: Spontaneous
  Country: DE (occurrence: DE)
  Receive Date: 20200822
  Receipt Date: 20220322
  Transmission Date: 20220424
  Serious: Yes (Other)
  Sender: FDA-Public Use
  Company Number: None

PATIENT
  Age: 26 Year
  Sex: Male

DRUGS (6)
  1. DEXAMETHASONE [Suspect]
     Active Substance: DEXAMETHASONE
     Indication: Anaplastic astrocytoma
     Dosage: 4-16 MG DAILY
     Route: 065
     Dates: start: 2010
  2. HYDROXYUREA [Suspect]
     Active Substance: HYDROXYUREA
     Indication: Anaplastic astrocytoma
     Dosage: 500 MG, QD
     Route: 048
  3. HYDROXYUREA [Suspect]
     Active Substance: HYDROXYUREA
     Indication: Brain neoplasm
  4. BEVACIZUMAB [Suspect]
     Active Substance: BEVACIZUMAB
     Indication: Anaplastic astrocytoma
     Dosage: 10 MG/KG, Q2W (CYCLICAL)
     Route: 065
     Dates: start: 2010
  5. BEVACIZUMAB [Suspect]
     Active Substance: BEVACIZUMAB
     Indication: Brain neoplasm
  6. TEMOZOLOMIDE [Concomitant]
     Active Substance: TEMOZOLOMIDE
     Indication: Anaplastic astrocytoma
     Dosage: 500 MG, DAILY
     Route: 065

REACTIONS (6)
  - Skin necrosis [Not Recovered/Not Resolved]
  - Ulcer [Unknown]
  - Skin ulcer [Not Recovered/Not Resolved]
  - Impaired healing [Unknown]
  - Skin striae [Not Recovered/Not Resolved]
  - Product use in unapproved indication [Unknown]
